FAERS Safety Report 8897615 (Version 1)
Quarter: 2012Q4

REPORT INFORMATION
  Report Type: 
  Country: US (occurrence: US)
  Receive Date: 20121108
  Receipt Date: 20121108
  Transmission Date: 20130627
  Serious: No
  Sender: FDA-Public Use
  Company Number: US-AMGEN-USASP2012038580

PATIENT
  Sex: Female

DRUGS (3)
  1. ENBREL [Suspect]
     Indication: RHEUMATOID ARTHRITIS
     Dosage: 50 mg, qwk
     Dates: start: 20110622
  2. ENBREL [Suspect]
     Indication: SARCOIDOSIS
  3. ENBREL [Suspect]
     Indication: FIBROMYALGIA

REACTIONS (3)
  - Depression [Not Recovered/Not Resolved]
  - Sarcoidosis [Not Recovered/Not Resolved]
  - Influenza like illness [Not Recovered/Not Resolved]
